FAERS Safety Report 7870896-X (Version None)
Quarter: 2011Q4

REPORT INFORMATION
  Report Type: 
  Country: None (occurrence: None)
  Receive Date: 20111029
  Receipt Date: 20110221
  Transmission Date: 20120403
  Serious: No
  Sender: FDA-Public Use
  Company Number: US-AMGEN-USASP2011009914

PATIENT
  Sex: Male

DRUGS (1)
  1. ENBREL [Suspect]
     Indication: PSORIASIS
     Dosage: 50 MG, QWK
     Dates: start: 20050501

REACTIONS (7)
  - THROAT IRRITATION [None]
  - FATIGUE [None]
  - COUGH [None]
  - PSORIASIS [None]
  - ROAD TRAFFIC ACCIDENT [None]
  - PAIN [None]
  - LARYNGITIS [None]
